FAERS Safety Report 10440568 (Version 1)
Quarter: 2014Q3

REPORT INFORMATION
  Report Type: Spontaneous
  Country: US (occurrence: None)
  Receive Date: 20140908
  Receipt Date: 20140908
  Transmission Date: 20150326
  Serious: No
  Sender: FDA-Public Use
  Company Number: None

PATIENT
  Age: 34 Year
  Sex: Female
  Weight: 63.5 kg

DRUGS (1)
  1. AMOXICILLIN. [Suspect]
     Active Substance: AMOXICILLIN
     Indication: SINUSITIS
     Dosage: 1 PILL TWICE DAILY TAKEN BY MOUTH
     Route: 048
     Dates: start: 20140831, end: 20140903

REACTIONS (6)
  - Malaise [None]
  - Diarrhoea [None]
  - Blood glucose fluctuation [None]
  - Confusional state [None]
  - Asthenia [None]
  - Abdominal discomfort [None]

NARRATIVE: CASE EVENT DATE: 20140904
